FAERS Safety Report 8384880-3 (Version None)
Quarter: 2012Q2

REPORT INFORMATION
  Report Type: 
  Country: None (occurrence: None)
  Receive Date: 20120524
  Receipt Date: 20120516
  Transmission Date: 20120825
  Serious: Yes (Hospitalization, Other)
  Sender: FDA-Public Use
  Company Number: US-VERTEX PHARMACEUTICALS INC.-AE-2012-007312

PATIENT
  Sex: Female

DRUGS (3)
  1. INCIVEK [Suspect]
     Indication: HEPATITIS C
     Route: 048
     Dates: start: 20120201, end: 20120424
  2. PEGASYS [Concomitant]
     Indication: HEPATITIS C
     Dates: start: 20120201, end: 20120424
  3. RIBAVIRIN [Concomitant]
     Indication: HEPATITIS C
     Dates: start: 20120201, end: 20120424

REACTIONS (5)
  - PNEUMONIA [None]
  - HAEMANGIOMA OF LIVER [None]
  - ANAEMIA [None]
  - BLOOD ALBUMIN INCREASED [None]
  - HEPATIC CIRRHOSIS [None]
